FAERS Safety Report 11619540 (Version 4)
Quarter: 2015Q4

REPORT INFORMATION
  Report Type: Spontaneous
  Country: JP (occurrence: JP)
  Receive Date: 20151012
  Receipt Date: 20151214
  Transmission Date: 20160304
  Serious: Yes (Hospitalization)
  Sender: FDA-Public Use
  Company Number: JP-GLAXOSMITHKLINE-JP2015JPN141991

PATIENT
  Age: 27 Year
  Sex: Female
  Weight: 59 kg

DRUGS (2)
  1. FAVOIR [Concomitant]
     Indication: MENSTRUATION IRREGULAR
     Dosage: UNK
  2. DUAC GEL [Suspect]
     Active Substance: BENZOYL PEROXIDE\CLINDAMYCIN PHOSPHATE
     Indication: ACNE
     Dosage: UNK, QD
     Route: 050
     Dates: start: 20150928, end: 20150930

REACTIONS (7)
  - Application site pruritus [Recovering/Resolving]
  - Rash maculo-papular [Recovering/Resolving]
  - Dermatitis contact [Recovering/Resolving]
  - Application site irritation [Recovering/Resolving]
  - Application site erythema [Recovering/Resolving]
  - Application site swelling [Recovering/Resolving]
  - Application site warmth [Recovering/Resolving]

NARRATIVE: CASE EVENT DATE: 20150928
